FAERS Safety Report 5057740-3 (Version None)
Quarter: 2006Q3

REPORT INFORMATION
  Report Type: 
  Country: None (occurrence: None)
  Receive Date: 20060721
  Receipt Date: 20060201
  Transmission Date: 20061208
  Serious: No
  Sender: FDA-Public Use
  Company Number: US-GLAXOSMITHKLINE-A0591924A

PATIENT
  Age: 71 Year
  Sex: Male

DRUGS (2)
  1. AVANDIA [Suspect]
     Dosage: 7MG PER DAY
     Route: 048
  2. METFORMIN [Suspect]
     Route: 065

REACTIONS (10)
  - ANOREXIA [None]
  - BALANCE DISORDER [None]
  - BLOOD GLUCOSE INCREASED [None]
  - CONFUSIONAL STATE [None]
  - DRUG INEFFECTIVE [None]
  - FATIGUE [None]
  - FEELING ABNORMAL [None]
  - MALAISE [None]
  - RASH GENERALISED [None]
  - VIRAL INFECTION [None]
